FAERS Safety Report 8617644-3 (Version None)
Quarter: 2012Q3

REPORT INFORMATION
  Report Type: 
  Country: None (occurrence: None)
  Receive Date: 20120824
  Receipt Date: 20120322
  Transmission Date: 20120928
  Serious: No
  Sender: FDA-Public Use
  Company Number: US-ASTRAZENECA-2011SE75925

PATIENT
  Age: 65 Year
  Sex: Female

DRUGS (3)
  1. SYMBICORT [Suspect]
     Dosage: 80/4.5 MCG 1 PUFF A DAY
     Route: 055
  2. SYMBICORT [Suspect]
     Dosage: 80/4.5 MCG 2 PUFFS A DAY
     Route: 055
  3. LISINOPRIL [Suspect]
     Indication: BLOOD PRESSURE ABNORMAL
     Route: 048

REACTIONS (2)
  - COUGH [None]
  - INTENTIONAL DRUG MISUSE [None]
